FAERS Safety Report 6652544-X (Version None)
Quarter: 2010Q1

REPORT INFORMATION
  Report Type: 
  Country: None (occurrence: None)
  Receive Date: 20100325
  Receipt Date: 20100325
  Transmission Date: 20100710
  Serious: Yes (Hospitalization, Other)
  Sender: FDA-Public Use
  Company Number: None

PATIENT
  Sex: Female
  Weight: 70.3075 kg

DRUGS (2)
  1. FOSAMAX [Suspect]
     Indication: OSTEOPENIA
     Dosage: 70MG WEEKLY PO
     Route: 048
     Dates: start: 20020701, end: 20061201
  2. ACTONEL [Suspect]
     Indication: OSTEOPENIA
     Dosage: 35 MG AND 150 MG WEEKLY/MONTHLY PO
     Route: 048
     Dates: start: 20070101, end: 20100301

REACTIONS (4)
  - FALL [None]
  - FEMUR FRACTURE [None]
  - STRESS FRACTURE [None]
  - WRIST FRACTURE [None]
